FAERS Safety Report 23333176 (Version 1)
Quarter: 2023Q4

REPORT INFORMATION
  Report Type: Spontaneous
  Country: US (occurrence: US)
  Receive Date: 20231222
  Receipt Date: 20231222
  Transmission Date: 20240110
  Serious: No
  Sender: FDA-Public Use
  Company Number: US-PFIZER INC-PV202300157660

PATIENT
  Age: 46 Year
  Sex: Male

DRUGS (5)
  1. XELJANZ XR [Suspect]
     Active Substance: TOFACITINIB CITRATE
     Indication: Psoriatic arthropathy
     Dosage: UNK
  2. XELJANZ XR [Suspect]
     Active Substance: TOFACITINIB CITRATE
     Indication: Rheumatoid arthritis
  3. MELOXICAM [Concomitant]
     Active Substance: MELOXICAM
     Dosage: UNK
  4. VTAMA [Concomitant]
     Active Substance: TAPINAROF
     Dosage: UNK
  5. TRIDERM [BETAMETHASONE DIPROPIONATE;CLOTRIMAZOLE;GENTAMICIN SULFATE] [Concomitant]
     Dosage: UNK

REACTIONS (2)
  - Off label use [Unknown]
  - Drug effect less than expected [Unknown]
